FAERS Safety Report 9981284 (Version 1)
Quarter: 2014Q1

REPORT INFORMATION
  Report Type: Spontaneous
  Country: US (occurrence: None)
  Receive Date: 20140306
  Receipt Date: 20140306
  Transmission Date: 20141002
  Serious: Yes (Hospitalization)
  Sender: FDA-Public Use
  Company Number: None

PATIENT
  Age: 68 Year
  Sex: Male
  Weight: 77.11 kg

DRUGS (1)
  1. TECFIDERA 240 MG, BIOGEN [Suspect]
     Indication: MULTIPLE SCLEROSIS
     Dosage: TAKEN BY MOUTH
     Route: 048
     Dates: start: 20140101, end: 20140305

REACTIONS (3)
  - Palpitations [None]
  - Loss of consciousness [None]
  - Atrial fibrillation [None]
